FAERS Safety Report 17376947 (Version 1)
Quarter: 2020Q1

REPORT INFORMATION
  Report Type: Spontaneous
  Country: US (occurrence: US)
  Receive Date: 20200205
  Receipt Date: 20200205
  Transmission Date: 20200409
  Serious: Yes (Life-Threatening, Hospitalization)
  Sender: FDA-Public Use
  Company Number: None

PATIENT
  Age: 70 Year
  Sex: Female
  Weight: 86.4 kg

DRUGS (2)
  1. SIMPONI [Suspect]
     Active Substance: GOLIMUMAB
     Indication: RHEUMATOID ARTHRITIS
     Dosage: ?          OTHER FREQUENCY:EVERY 8 WEEKS;?
     Route: 041
     Dates: start: 20150831, end: 20191216
  2. MEHOTREXATE 25MG/ML 0.7CC SQ WEEKLY [Concomitant]
     Dates: start: 20170912, end: 20191231

REACTIONS (3)
  - Transfusion [None]
  - Asthenia [None]
  - Loss of consciousness [None]

NARRATIVE: CASE EVENT DATE: 20191231
